FAERS Safety Report 17492632 (Version 4)
Quarter: 2022Q1

REPORT INFORMATION
  Report Type: Other
  Country: US (occurrence: None)
  Receive Date: 20200304
  Receipt Date: 20220309
  Transmission Date: 20220423
  Serious: Yes (Other)
  Sender: FDA-Public Use
  Company Number: US-ROCHE-2561529

PATIENT
  Sex: Female
  Weight: 56.750 kg

DRUGS (7)
  1. ERIVEDGE [Suspect]
     Active Substance: VISMODEGIB
     Indication: Neoplasm malignant
     Dosage: NO
     Route: 048
     Dates: start: 20191101, end: 20200120
  2. ERIVEDGE [Suspect]
     Active Substance: VISMODEGIB
     Indication: Skin cancer
     Route: 048
     Dates: start: 2018, end: 2020
  3. ERIVEDGE [Suspect]
     Active Substance: VISMODEGIB
     Indication: Basal cell carcinoma
  4. VITAMIN C [Concomitant]
     Active Substance: ASCORBIC ACID
     Route: 048
  5. MELOXICAM [Concomitant]
     Active Substance: MELOXICAM
     Route: 048
  6. MONTELUKAST [Concomitant]
     Active Substance: MONTELUKAST SODIUM
     Route: 048
  7. PROAIR RESPICLICK [Concomitant]
     Active Substance: ALBUTEROL SULFATE
     Dosage: 90 MCG/ACTUATION BREATH ACTIVATED
     Route: 055

REACTIONS (7)
  - Skin lesion [Unknown]
  - Cyst [Not Recovered/Not Resolved]
  - Pharyngeal mass [Not Recovered/Not Resolved]
  - Alopecia [Not Recovered/Not Resolved]
  - Vision blurred [Not Recovered/Not Resolved]
  - Muscle spasms [Not Recovered/Not Resolved]
  - Depression [Not Recovered/Not Resolved]
